FAERS Safety Report 17571278 (Version 1)
Quarter: 2020Q1

REPORT INFORMATION
  Report Type: Spontaneous
  Country: US (occurrence: US)
  Receive Date: 20200317
  Receipt Date: 20200317
  Transmission Date: 20200409
  Serious: Yes (Hospitalization)
  Sender: FDA-Public Use
  Company Number: None

PATIENT
  Sex: Male
  Weight: 16.4 kg

DRUGS (1)
  1. METHOTREXATE. [Suspect]
     Active Substance: METHOTREXATE

REACTIONS (4)
  - Blood count abnormal [None]
  - Pyrexia [None]
  - Cough [None]
  - Pulmonary congestion [None]

NARRATIVE: CASE EVENT DATE: 20171211
